FAERS Safety Report 6203202-7 (Version None)
Quarter: 2009Q2

REPORT INFORMATION
  Report Type: 
  Country: None (occurrence: None)
  Receive Date: 20090522
  Receipt Date: 20090522
  Transmission Date: 20091009
  Serious: Yes (Hospitalization)
  Sender: FDA-Public Use
  Company Number: None

PATIENT
  Sex: Female
  Weight: 65.318 kg

DRUGS (1)
  1. HYDROXYCHLOROQUINE 200 MG [Suspect]
     Indication: LUNG NEOPLASM MALIGNANT
     Dosage: 200 MG ONCE A DAY ORAL
     Route: 048
     Dates: start: 20090511

REACTIONS (2)
  - NEUTROPHIL COUNT DECREASED [None]
  - PYREXIA [None]
